FAERS Safety Report 4570389-1 (Version None)
Quarter: 2005Q1

REPORT INFORMATION
  Report Type: 
  Country: None (occurrence: None)
  Receive Date: 20050204
  Receipt Date: 20050127
  Transmission Date: 20050727
  Serious: Yes (Hospitalization)
  Sender: FDA-Public Use
  Company Number: US-JNJFOC-20050107242

PATIENT
  Sex: Female
  Weight: 142.88 kg

DRUGS (9)
  1. DURAGESIC [Suspect]
     Route: 062
     Dates: start: 20041101
  2. ACTOS [Concomitant]
     Route: 049
     Dates: start: 19980101
  3. MELAZINE [Concomitant]
     Indication: DIZZINESS
     Route: 049
     Dates: start: 19980101
  4. PREMARIN [Concomitant]
     Indication: HYSTERECTOMY
     Route: 049
     Dates: start: 20040501
  5. LIPITOR [Concomitant]
     Route: 049
     Dates: start: 20030701
  6. NEXIUM [Concomitant]
     Route: 049
     Dates: start: 20030701
  7. ATENOLOL [Concomitant]
     Route: 049
     Dates: start: 19900101
  8. NORVASC [Concomitant]
     Route: 049
     Dates: start: 20030701
  9. SPIRONOLACTONE [Concomitant]
     Route: 049
     Dates: start: 19980101

REACTIONS (4)
  - CONCUSSION [None]
  - FALL [None]
  - HEAD INJURY [None]
  - LOSS OF CONSCIOUSNESS [None]
